FAERS Safety Report 24172419 (Version 1)
Quarter: 2024Q3

REPORT INFORMATION
  Report Type: Spontaneous
  Country: FR (occurrence: FR)
  Receive Date: 20240805
  Receipt Date: 20240805
  Transmission Date: 20241017
  Serious: Yes (Other)
  Sender: TAKEDA
  Company Number: FR-TAKEDA-2024TUS071405

PATIENT
  Age: 36 Year
  Sex: Female

DRUGS (2)
  1. HUMAN IMMUNOGLOBULIN G [Suspect]
     Active Substance: HUMAN IMMUNOGLOBULIN G
     Indication: Placental disorder
     Dosage: UNK, UNK, 2/MONTH
     Route: 042
  2. METHYLDOPA [Concomitant]
     Active Substance: METHYLDOPA
     Dosage: UNK
     Route: 065

REACTIONS (5)
  - Abortion spontaneous [Recovered/Resolved]
  - Off label use [Unknown]
  - Maternal exposure during pregnancy [Recovered/Resolved]
  - Exposure during pregnancy [Recovered/Resolved]
  - Product use in unapproved indication [Unknown]
